FAERS Safety Report 7494206-5 (Version None)
Quarter: 2011Q2

REPORT INFORMATION
  Report Type: 
  Country: None (occurrence: None)
  Receive Date: 20110520
  Receipt Date: 20110511
  Transmission Date: 20111010
  Serious: Yes (Other)
  Sender: FDA-Public Use
  Company Number: CA-JNJFOC-20100208035

PATIENT
  Sex: Female
  Weight: 104.5 kg

DRUGS (17)
  1. GOLIMUMAB [Suspect]
     Route: 058
     Dates: end: 20100102
  2. LORAZEPAM [Concomitant]
     Dates: start: 20070613
  3. TYLENOL W/ CODEINE NO. 3 [Concomitant]
     Route: 048
     Dates: start: 20081015
  4. LORAZEPAM [Concomitant]
     Dates: start: 20080829
  5. OMEPRAZOLE [Concomitant]
     Route: 048
     Dates: start: 20070805
  6. NOVO-ACEBUTOLOL [Concomitant]
     Route: 048
     Dates: start: 20060101
  7. ALBUTEROL [Concomitant]
     Dates: start: 20000101
  8. BETAMETHASONE VALERATE [Concomitant]
     Route: 061
     Dates: start: 20090916
  9. ECTOSONE [Concomitant]
     Route: 061
     Dates: start: 20070713
  10. PREXIGE [Concomitant]
     Route: 048
     Dates: start: 20070801
  11. AMITRIPTYLINE HCL [Concomitant]
     Route: 048
     Dates: start: 20080829
  12. DOCUSATE SODIUM [Concomitant]
     Route: 048
     Dates: start: 20081015
  13. MICARDIS HCT [Concomitant]
     Route: 048
     Dates: start: 20090906
  14. SINGULAIR [Concomitant]
     Route: 048
     Dates: start: 20000101
  15. GOLIMUMAB [Suspect]
     Indication: PSORIATIC ARTHROPATHY
     Route: 058
     Dates: start: 20060905
  16. NOVO-METHACIN [Concomitant]
     Route: 048
     Dates: start: 20060623
  17. APO-SIMVASTATIN [Concomitant]
     Route: 048
     Dates: start: 20090905

REACTIONS (2)
  - COLON ADENOMA [None]
  - COLON CANCER [None]
